FAERS Safety Report 12580952 (Version 1)
Quarter: 2016Q3

REPORT INFORMATION
  Report Type: Spontaneous
  Country: JP (occurrence: JP)
  Receive Date: 20160721
  Receipt Date: 20160721
  Transmission Date: 20161109
  Serious: Yes (Hospitalization)
  Sender: FDA-Public Use
  Company Number: JP-TEVA-2016-JP-001605J

PATIENT
  Age: 15 Year
  Sex: Male

DRUGS (4)
  1. EPIPEN [Suspect]
     Active Substance: EPINEPHRINE
     Indication: FOOD ALLERGY
  2. SAXIZON [Suspect]
     Active Substance: HYDROCORTISONE SODIUM SUCCINATE
     Indication: SICK BUILDING SYNDROME
     Dosage: 300 MILLIGRAM DAILY;
     Route: 041
     Dates: start: 20130510, end: 20130510
  3. EPIPEN [Suspect]
     Active Substance: EPINEPHRINE
     Indication: SICK BUILDING SYNDROME
     Route: 030
     Dates: start: 20130510, end: 20130510
  4. POLARAMINE [Suspect]
     Active Substance: DEXCHLORPHENIRAMINE MALEATE
     Indication: SICK BUILDING SYNDROME
     Dosage: 5 MILLIGRAM DAILY;
     Route: 041
     Dates: start: 20130510, end: 20130510

REACTIONS (1)
  - Gait disturbance [Recovered/Resolved]

NARRATIVE: CASE EVENT DATE: 20130510
